FAERS Safety Report 13603074 (Version 1)
Quarter: 2017Q2

REPORT INFORMATION
  Report Type: Spontaneous
  Country: US (occurrence: US)
  Receive Date: 20170601
  Receipt Date: 20170601
  Transmission Date: 20170830
  Serious: Yes (Other)
  Sender: FDA-Public Use
  Company Number: US-ABBVIE-17P-163-1991537-00

PATIENT
  Sex: Male

DRUGS (1)
  1. DEPAKOTE [Suspect]
     Active Substance: DIVALPROEX SODIUM
     Indication: MATERNAL EXPOSURE TIMING UNSPECIFIED
     Route: 064

REACTIONS (18)
  - Prominent epicanthal folds [Unknown]
  - Multiple congenital abnormalities [Unknown]
  - Mental impairment [Unknown]
  - Autism spectrum disorder [Unknown]
  - Dysmorphism [Unknown]
  - Foot deformity [Unknown]
  - Ear malformation [Unknown]
  - Speech disorder [Unknown]
  - Hypotonia [Unknown]
  - Nipple disorder [Unknown]
  - Foetal anticonvulsant syndrome [Unknown]
  - Low set ears [Unknown]
  - Foetal exposure during pregnancy [Unknown]
  - Nasal disorder [Unknown]
  - Cognitive disorder [Unknown]
  - Motor developmental delay [Unknown]
  - Optic neuropathy [Unknown]
  - Developmental delay [Unknown]
